FAERS Safety Report 11616437 (Version 1)
Quarter: 2015Q4

REPORT INFORMATION
  Report Type: Report from Study
  Country: BR (occurrence: BR)
  Receive Date: 20151009
  Receipt Date: 20151009
  Transmission Date: 20160304
  Serious: Yes (Death)
  Sender: FDA-Public Use
  Company Number: ALCN2015BR006286

PATIENT
  Age: 87 Year
  Sex: Female
  Weight: 60 kg

DRUGS (1)
  1. VITALUX PLUS [Suspect]
     Active Substance: VITAMINS
     Indication: DRY AGE-RELATED MACULAR DEGENERATION
     Dosage: 1 DF, QD
     Route: 048
     Dates: start: 2009

REACTIONS (4)
  - Cerebrovascular accident [Fatal]
  - Nosocomial infection [Fatal]
  - Cardiac arrest [Fatal]
  - Pneumonia [Fatal]

NARRATIVE: CASE EVENT DATE: 201410
